FAERS Safety Report 8618991-1 (Version None)
Quarter: 2012Q3

REPORT INFORMATION
  Report Type: 
  Country: None (occurrence: None)
  Receive Date: 20120824
  Receipt Date: 20120820
  Transmission Date: 20120928
  Serious: Yes (Other)
  Sender: FDA-Public Use
  Company Number: PHHY2012BR072315

PATIENT
  Age: 60 Year
  Sex: Female
  Weight: 90 kg

DRUGS (7)
  1. ONBREZ [Suspect]
     Dosage: 150 UG, QD
  2. ANTIDEPRESSANTS [Concomitant]
     Dosage: UNK UKN, UNK
  3. CHANTIX [Concomitant]
     Dosage: UNK UKN, UNK
  4. ACETYLSALICYLIC ACID SRT [Concomitant]
     Dosage: 200 UKN, UNK
  5. VENLAFAXINE HYDROCHOLRIDE [Concomitant]
     Dosage: UNK UKN, UNK
  6. FORMOTEROL FUMARATE [Suspect]
     Dosage: 1 DF, BID
  7. ENALAPRIL MALEATE [Concomitant]
     Dosage: 10 MG, BY THE MORNING AND AT NIGHT

REACTIONS (6)
  - WHEEZING [None]
  - WEIGHT INCREASED [None]
  - RESPIRATORY TRACT INFECTION [None]
  - ARTHRALGIA [None]
  - COUGH [None]
  - RESPIRATORY DISORDER [None]
